FAERS Safety Report 25225434 (Version 1)
Quarter: 2025Q2

REPORT INFORMATION
  Report Type: Other
  Country: US (occurrence: US)
  Receive Date: 20250422
  Receipt Date: 20250422
  Transmission Date: 20250716
  Serious: Yes (Other)
  Sender: TIME CAPS
  Company Number: US-Time-Cap Labs, Inc.-2175340

PATIENT

DRUGS (1)
  1. PSYLLIUM FIBER [Suspect]
     Active Substance: PSYLLIUM HUSK
     Indication: Product used for unknown indication

REACTIONS (5)
  - Diarrhoea [Unknown]
  - Muscle spasms [Unknown]
  - Dizziness [Unknown]
  - Dyspnoea [Unknown]
  - Abdominal pain upper [Unknown]
